FAERS Safety Report 20083546 (Version 4)
Quarter: 2022Q1

REPORT INFORMATION
  Report Type: Spontaneous
  Country: PL (occurrence: PL)
  Receive Date: 20211118
  Receipt Date: 20220219
  Transmission Date: 20220423
  Serious: Yes (Hospitalization, Other)
  Sender: FDA-Public Use
  Company Number: PL-SUNFARM-20213389

PATIENT
  Age: 36 Year
  Sex: Male

DRUGS (14)
  1. BISOPROLOL [Suspect]
     Active Substance: BISOPROLOL
     Indication: Cardiac sarcoidosis
     Dosage: 2.5 MILLIGRAM, ONCE A DAY
     Route: 048
  2. BISOPROLOL [Suspect]
     Active Substance: BISOPROLOL
     Indication: Lung disorder
     Dosage: 10 MILLIGRAM
     Route: 065
  3. BISOPROLOL [Suspect]
     Active Substance: BISOPROLOL
     Indication: Ventricular arrhythmia
  4. PANTOPRAZOLE [Suspect]
     Active Substance: PANTOPRAZOLE
     Indication: Cardiac sarcoidosis
     Dosage: 20 MILLIGRAM, ONCE A DAY
     Route: 065
  5. PANTOPRAZOLE [Suspect]
     Active Substance: PANTOPRAZOLE
     Indication: Lung disorder
  6. BECLOMETHASONE DIPROPIONATE\FORMOTEROL [Suspect]
     Active Substance: BECLOMETHASONE DIPROPIONATE\FORMOTEROL
     Indication: Cardiac sarcoidosis
     Dosage: UNK (BECLOMETHASONE (100 ?G) WITH FORMOTEROL (6 ?G))
  7. BECLOMETHASONE DIPROPIONATE\FORMOTEROL [Suspect]
     Active Substance: BECLOMETHASONE DIPROPIONATE\FORMOTEROL
     Indication: Lung disorder
     Dosage: 100/6 MCG
     Route: 055
  8. BECLOMETHASONE DIPROPIONATE\FORMOTEROL [Suspect]
     Active Substance: BECLOMETHASONE DIPROPIONATE\FORMOTEROL
     Indication: Product used for unknown indication
     Dosage: 100 MICROGRAM
     Route: 045
  9. FORMOTEROL [Suspect]
     Active Substance: FORMOTEROL
     Indication: Product used for unknown indication
     Dosage: 6 MICROGRAM
     Route: 055
  10. METHYLPREDNISOLONE [Suspect]
     Active Substance: METHYLPREDNISOLONE
     Indication: Cardiac sarcoidosis
     Dosage: ONCE A DAY(GRADUALLY REDUCE THE DOSE TO 8 MG / DAY)
     Route: 065
  11. METHYLPREDNISOLONE [Suspect]
     Active Substance: METHYLPREDNISOLONE
     Indication: Adrenocortical steroid therapy
     Dosage: 24 MILLIGRAM, ONCE A DAY
     Route: 065
  12. METHYLPREDNISOLONE [Suspect]
     Active Substance: METHYLPREDNISOLONE
     Indication: Lung disorder
     Dosage: 32 MILLIGRAM, ONCE A DAY
     Route: 065
  13. METHYLPREDNISOLONE [Suspect]
     Active Substance: METHYLPREDNISOLONE
     Indication: Sarcoidosis
     Dosage: 28 MILLIGRAM, ONCE A DAY
     Route: 065
  14. METHYLPREDNISOLONE [Suspect]
     Active Substance: METHYLPREDNISOLONE
     Indication: Pulmonary function test decreased
     Dosage: 8 MILLIGRAM, ONCE A DAY
     Route: 065

REACTIONS (5)
  - Cushing^s syndrome [Unknown]
  - Blood creatinine increased [Unknown]
  - Therapeutic response decreased [Unknown]
  - Fibrin D dimer increased [Unknown]
  - Drug ineffective [Unknown]
